FAERS Safety Report 7419747-8 (Version None)
Quarter: 2011Q2

REPORT INFORMATION
  Report Type: 
  Country: None (occurrence: None)
  Receive Date: 20110418
  Receipt Date: 20110408
  Transmission Date: 20111010
  Serious: Yes (Hospitalization)
  Sender: FDA-Public Use
  Company Number: US-ASTELLAS-2011US001439

PATIENT
  Sex: Male

DRUGS (1)
  1. AMEVIVE [Suspect]
     Indication: PRODUCT USED FOR UNKNOWN INDICATION
     Dosage: UNK
     Route: 065

REACTIONS (3)
  - CD4 LYMPHOCYTES ABNORMAL [None]
  - RESPIRATORY TRACT INFECTION [None]
  - PLATELET COUNT ABNORMAL [None]
